FAERS Safety Report 14744672 (Version 1)
Quarter: 2018Q2

REPORT INFORMATION
  Report Type: Spontaneous
  Country: AT (occurrence: AT)
  Receive Date: 20180411
  Receipt Date: 20180411
  Transmission Date: 20180711
  Serious: Yes (Other)
  Sender: FDA-Public Use
  Company Number: AT-AMGEN-AUTSP2018046114

PATIENT
  Age: 44 Year
  Sex: Female

DRUGS (4)
  1. XGEVA [Suspect]
     Active Substance: DENOSUMAB
     Indication: PRODUCT USED FOR UNKNOWN INDICATION
     Dosage: 120 MG, Q4WK
     Route: 058
     Dates: start: 201704
  2. LETROZOL [Concomitant]
     Active Substance: LETROZOLE
     Dosage: 2.5 MG, QD
     Dates: start: 201704
  3. GOSERELIN [Concomitant]
     Active Substance: GOSERELIN
     Dosage: 3.6 MG, Q4WK
     Route: 058
     Dates: start: 201704
  4. PALBOCICLIB [Concomitant]
     Active Substance: PALBOCICLIB
     Dosage: 125 MG/DL, Q4WK
     Dates: start: 201704

REACTIONS (3)
  - Fatigue [Unknown]
  - Alopecia [Unknown]
  - Neutropenia [Unknown]
